FAERS Safety Report 8940160 (Version 3)
Quarter: 2013Q2

REPORT INFORMATION
  Report Type: Report from Study
  Country: BR (occurrence: BR)
  Receive Date: 20121130
  Receipt Date: 20130618
  Transmission Date: 20140414
  Serious: Yes (Other)
  Sender: FDA-Public Use
  Company Number: BR-ABBOTT-12P-020-1013866-00

PATIENT
  Age: 62 Year
  Sex: Female
  Weight: 86 kg

DRUGS (11)
  1. HUMIRA [Suspect]
     Indication: ILEUS
     Dosage: WEEK 0
     Route: 058
     Dates: start: 20120208, end: 20120208
  2. HUMIRA [Suspect]
     Indication: INTESTINAL FISTULA
     Dosage: WEEK 2
     Route: 058
  3. HUMIRA [Suspect]
     Indication: CROHN^S DISEASE
     Route: 058
  4. HUMIRA [Suspect]
     Dates: start: 201206, end: 201211
  5. HUMIRA [Suspect]
     Route: 058
     Dates: start: 201211
  6. METFORMIN [Concomitant]
     Indication: DIABETES MELLITUS
     Route: 048
     Dates: start: 2011
  7. LOSARTAN [Concomitant]
     Indication: CARDIAC DISORDER
     Route: 048
     Dates: start: 2011
  8. AZATHIOPRINE [Concomitant]
     Indication: IRRITABLE BOWEL SYNDROME
     Dosage: AT NIGHT
     Route: 048
     Dates: start: 2004
  9. HYDROCHLOROTHIAZIDE [Concomitant]
     Indication: HYPERTENSION
     Route: 048
     Dates: start: 2011
  10. CIPROFLOXACIN [Concomitant]
     Indication: INFLAMMATION
     Route: 048
     Dates: start: 201202
  11. METRONIDAZOLE [Concomitant]
     Indication: PRODUCT USED FOR UNKNOWN INDICATION

REACTIONS (4)
  - Intestinal fistula [Recovered/Resolved]
  - Subcutaneous abscess [Unknown]
  - Anal abscess [Recovering/Resolving]
  - Anal fistula [Recovered/Resolved]
